FAERS Safety Report 15646530 (Version 2)
Quarter: 2018Q4

REPORT INFORMATION
  Report Type: Report from Study
  Country: None (occurrence: SE)
  Receive Date: 20181122
  Receipt Date: 20181205
  Transmission Date: 20190205
  Serious: Yes (Death)
  Sender: FDA-Public Use
  Company Number: SE-ABBVIE-18S-150-2563178-00

PATIENT
  Age: 80 Year
  Sex: Male
  Weight: 69 kg

DRUGS (4)
  1. SIMVASTATIN. [Concomitant]
     Active Substance: SIMVASTATIN
     Indication: LIPIDS ABNORMAL
     Route: 048
     Dates: end: 20181115
  2. TROMBYL [Concomitant]
     Active Substance: ASPIRIN
     Indication: BLOOD DISORDER
     Route: 048
     Dates: end: 20181115
  3. DUODOPA [Suspect]
     Active Substance: CARBIDOPA\LEVODOPA
     Indication: PARKINSON^S DISEASE
     Route: 050
     Dates: start: 20171106
  4. DUODOPA [Suspect]
     Active Substance: CARBIDOPA\LEVODOPA
     Dosage: CD DAY: 3.5 ML/H CD NIGHT: 2.6 ML
     Route: 050
     Dates: start: 20171201, end: 20181116

REACTIONS (8)
  - Blood pressure decreased [Unknown]
  - Haemorrhage intracranial [Fatal]
  - Fall [Fatal]
  - Head injury [Fatal]
  - Cerebral haemorrhage [Fatal]
  - Syncope [Unknown]
  - Loss of consciousness [Fatal]
  - Lipids increased [Unknown]

NARRATIVE: CASE EVENT DATE: 2018
